FAERS Safety Report 15393119 (Version 3)
Quarter: 2018Q4

REPORT INFORMATION
  Report Type: Spontaneous
  Country: US (occurrence: US)
  Receive Date: 20180917
  Receipt Date: 20181203
  Transmission Date: 20190204
  Serious: No
  Sender: FDA-Public Use
  Company Number: US-BAYER-2018-173336

PATIENT
  Age: 22 Year
  Sex: Female

DRUGS (2)
  1. SKYLA [Suspect]
     Active Substance: LEVONORGESTREL
     Dosage: 14 MCG/24HR, CONT
     Route: 015
  2. MIRENA [Suspect]
     Active Substance: LEVONORGESTREL
     Indication: CONTRACEPTION
     Dosage: 20 MCG/24HR, CONT
     Route: 015
     Dates: start: 201307

REACTIONS (2)
  - Galactorrhoea [Not Recovered/Not Resolved]
  - Galactorrhoea [None]

NARRATIVE: CASE EVENT DATE: 201307
